FAERS Safety Report 10749595 (Version 1)
Quarter: 2015Q1

REPORT INFORMATION
  Report Type: Spontaneous
  Country: PL (occurrence: PL)
  Receive Date: 20150129
  Receipt Date: 20150129
  Transmission Date: 20150721
  Serious: Yes (Hospitalization)
  Sender: FDA-Public Use
  Company Number: PL-VERTEX PHARMACEUTICALS-2015-000257

PATIENT
  Age: 51 Year
  Sex: Female

DRUGS (3)
  1. INCIVO [Suspect]
     Active Substance: TELAPREVIR
     Indication: HEPATITIS C
     Dosage: UNK
     Route: 048
  2. PEGYLATED INTERFERON ALPHA NOS [Suspect]
     Active Substance: PEGINTERFERON ALFA-2A OR PEGINTERFERON ALFA-2B
     Indication: HEPATITIS C
     Dosage: UNK
     Route: 065
  3. RIBAVIRIN. [Suspect]
     Active Substance: RIBAVIRIN
     Indication: HEPATITIS C
     Dosage: UNK
     Route: 065

REACTIONS (1)
  - Sepsis [Recovered/Resolved]
